FAERS Safety Report 7510461-7 (Version None)
Quarter: 2011Q2

REPORT INFORMATION
  Report Type: 
  Country: None (occurrence: None)
  Receive Date: 20110527
  Receipt Date: 20110525
  Transmission Date: 20111010
  Serious: Yes (Death, Hospitalization, Other)
  Sender: FDA-Public Use
  Company Number: GB-PFIZER INC-2010019424

PATIENT
  Age: 63 Year
  Sex: Male
  Weight: 123 kg

DRUGS (15)
  1. IPRATROPIUM BROMIDE [Concomitant]
     Dosage: 0 MG, 4X/DAY
     Dates: start: 20030704
  2. SERETIDE [Concomitant]
     Dosage: 0 MG, 2X/DAY
     Dates: start: 20070620
  3. QUININE SULFATE [Concomitant]
     Dosage: 200 MG, 1X/DAY
     Dates: start: 20060714
  4. LANSOPRAZOLE [Concomitant]
     Dosage: 30 MG, 2X/DAY
     Dates: start: 20080418
  5. BENDROFLUMETHIAZIDE [Concomitant]
     Dosage: 2 MG, 1X/DAY
     Dates: start: 20080430
  6. MIRTAZAPINE [Concomitant]
     Dosage: 45 MG, 1X/DAY
     Dates: start: 20040712
  7. CELECOXIB [Suspect]
     Indication: OSTEOARTHRITIS
     Dosage: 200 MG, 2X/DAY
     Route: 048
     Dates: start: 20090508
  8. ALLOPURINOL [Concomitant]
     Dosage: 100 MG, 1X/DAY
     Dates: start: 20071116
  9. CARBOCISTEINE [Concomitant]
     Dosage: 1125 MG, 2X/DAY
     Dates: start: 20071204
  10. AMOXICILLIN [Concomitant]
     Dosage: 1000 MG, 3X/DAY
     Dates: start: 20020429
  11. METFORMIN [Concomitant]
     Dosage: 500 MG, 1X/DAY
     Dates: start: 20090730
  12. TRIAMCINOLONE ACETONIDE [Concomitant]
     Dosage: 0 MG, 2X/DAY
     Dates: start: 20080418
  13. RAMIPRIL [Concomitant]
     Dosage: 10 MG, 1X/DAY
     Dates: start: 20080430
  14. PARACETAMOL [Concomitant]
     Dosage: 1000 MG, 4X/DAY
     Dates: start: 20070425
  15. TERBUTALINE [Concomitant]
     Dosage: UNK
     Dates: start: 20060817

REACTIONS (2)
  - RENAL IMPAIRMENT [None]
  - LUNG CARCINOMA CELL TYPE UNSPECIFIED STAGE 0 [None]
